FAERS Safety Report 8014236-4 (Version None)
Quarter: 2011Q4

REPORT INFORMATION
  Report Type: 
  Country: None (occurrence: None)
  Receive Date: 20111229
  Receipt Date: 20111222
  Transmission Date: 20120403
  Serious: Yes (Death)
  Sender: FDA-Public Use
  Company Number: US-GLAXOSMITHKLINE-A0959218A

PATIENT
  Age: 70 Year
  Sex: Male

DRUGS (15)
  1. SPIRIVA [Concomitant]
  2. VENTOLIN [Suspect]
     Indication: DYSPNOEA
     Route: 055
     Dates: start: 20040101
  3. HYTRIN [Concomitant]
  4. LEVOTHYROXINE SODIUM [Concomitant]
  5. NITROGLYCERIN [Concomitant]
  6. METOPROLOL SUCCINATE [Concomitant]
  7. FUROSEMIDE [Concomitant]
  8. ABREVA [Concomitant]
  9. LISINOPRIL [Concomitant]
  10. HUMULIN R [Concomitant]
  11. ADVAIR DISKUS 100/50 [Suspect]
     Indication: DYSPNOEA
     Dosage: 1PUFF TWICE PER DAY
     Route: 055
  12. PREDNISONE TAB [Concomitant]
  13. PLAVIX [Concomitant]
  14. ISOSORBIDE MONONITRATE [Concomitant]
  15. SIMVASTATIN [Concomitant]

REACTIONS (1)
  - DEATH [None]
